FAERS Safety Report 5742561-6 (Version None)
Quarter: 2008Q2

REPORT INFORMATION
  Report Type: 
  Country: None (occurrence: None)
  Receive Date: 20080515
  Receipt Date: 20080515
  Transmission Date: 20081010
  Serious: Yes (Hospitalization)
  Sender: FDA-Public Use
  Company Number: None

PATIENT
  Sex: Female
  Weight: 61.6892 kg

DRUGS (3)
  1. TYSABRI [Suspect]
     Indication: MULTIPLE SCLEROSIS
     Dosage: ONCE A MONTH
     Dates: start: 20071201
  2. TYSABRI [Suspect]
     Indication: MULTIPLE SCLEROSIS
     Dosage: ONCE A MONTH
     Dates: start: 20080101
  3. TYSABRI [Suspect]
     Indication: MULTIPLE SCLEROSIS
     Dosage: ONCE A MONTH
     Dates: start: 20080301

REACTIONS (6)
  - BLOOD POTASSIUM DECREASED [None]
  - CHILLS [None]
  - DIARRHOEA [None]
  - INFUSION RELATED REACTION [None]
  - PNEUMONIA [None]
  - URINARY TRACT INFECTION [None]
